FAERS Safety Report 13340731 (Version 1)
Quarter: 2017Q1

REPORT INFORMATION
  Report Type: Spontaneous
  Country: US (occurrence: US)
  Receive Date: 20170315
  Receipt Date: 20170315
  Transmission Date: 20170428
  Serious: Yes (Life-Threatening, Hospitalization, Disabling)
  Sender: FDA-Public Use
  Company Number: None

PATIENT
  Age: 71 Year
  Sex: Male
  Weight: 93.6 kg

DRUGS (15)
  1. HUMALOG [Concomitant]
     Active Substance: INSULIN LISPRO
  2. RANITIDINE. [Concomitant]
     Active Substance: RANITIDINE
  3. GEMZAR [Suspect]
     Active Substance: GEMCITABINE HYDROCHLORIDE
     Indication: PANCREATIC CARCINOMA
     Dates: start: 20160621, end: 20160728
  4. CALCIUM ACETATE. [Concomitant]
     Active Substance: CALCIUM ACETATE
  5. MINOXIDIL. [Concomitant]
     Active Substance: MINOXIDIL
  6. BUMETANIDE. [Concomitant]
     Active Substance: BUMETANIDE
  7. CARVEDILOL. [Concomitant]
     Active Substance: CARVEDILOL
  8. AMLODIPINE [Concomitant]
     Active Substance: AMLODIPINE BESYLATE
  9. LEVOTHYROXINE. [Concomitant]
     Active Substance: LEVOTHYROXINE
  10. MVI [Concomitant]
     Active Substance: VITAMINS
  11. ISORDIL [Concomitant]
     Active Substance: ISOSORBIDE DINITRATE
  12. LANTUS [Concomitant]
     Active Substance: INSULIN GLARGINE
  13. BENADRYL [Concomitant]
     Active Substance: DIPHENHYDRAMINE HYDROCHLORIDE
  14. TRAMADOL. [Concomitant]
     Active Substance: TRAMADOL
  15. PRAVASTATIN. [Concomitant]
     Active Substance: PRAVASTATIN

REACTIONS (9)
  - Renal failure [None]
  - Respiratory disorder [None]
  - Petechiae [None]
  - Oedema [None]
  - Haemodialysis [None]
  - Fatigue [None]
  - Thrombotic microangiopathy [None]
  - Blood pressure increased [None]
  - Cardiac failure congestive [None]

NARRATIVE: CASE EVENT DATE: 20160622
